FAERS Safety Report 18992991 (Version 1)
Quarter: 2021Q1

REPORT INFORMATION
  Report Type: Report from Study
  Country: AU (occurrence: AU)
  Receive Date: 20210310
  Receipt Date: 20210310
  Transmission Date: 20210420
  Serious: Yes (Other)
  Sender: FDA-Public Use
  Company Number: NVSC2021AU048669

PATIENT
  Sex: Female

DRUGS (8)
  1. METOPROLOL. [Suspect]
     Active Substance: METOPROLOL
     Indication: HEART RATE ABNORMAL
  2. METOPROLOL. [Suspect]
     Active Substance: METOPROLOL
     Indication: BLOOD PRESSURE ABNORMAL
     Route: 065
  3. CEFALEXIN [Suspect]
     Active Substance: CEPHALEXIN
     Indication: PRODUCT USED FOR UNKNOWN INDICATION
     Route: 065
  4. CORO?NITRO SPRAY [Concomitant]
     Indication: PRODUCT USED FOR UNKNOWN INDICATION
     Route: 065
  5. ZANIDIP [Concomitant]
     Active Substance: LERCANIDIPINE HYDROCHLORIDE
     Indication: PRODUCT USED FOR UNKNOWN INDICATION
     Route: 065
  6. PRIMOLUT [Concomitant]
     Indication: PRODUCT USED FOR UNKNOWN INDICATION
     Route: 065
  7. NUROFEN [Concomitant]
     Active Substance: IBUPROFEN
     Indication: PRODUCT USED FOR UNKNOWN INDICATION
     Route: 065
  8. ASPIRIN. [Concomitant]
     Active Substance: ASPIRIN
     Indication: PRODUCT USED FOR UNKNOWN INDICATION
     Route: 065

REACTIONS (30)
  - Progesterone decreased [Unknown]
  - Haemorrhoids [Unknown]
  - Abdominal discomfort [Unknown]
  - Cardiac disorder [Unknown]
  - Menorrhagia [Unknown]
  - Arthralgia [Unknown]
  - Pain [Unknown]
  - Skin cancer [Unknown]
  - Pain in extremity [Unknown]
  - Wheezing [Unknown]
  - Depression [Unknown]
  - Dermal cyst [Unknown]
  - Asthma [Unknown]
  - Paraesthesia [Unknown]
  - Weight increased [Unknown]
  - Muscle spasms [Unknown]
  - Dizziness [Unknown]
  - Chest pain [Unknown]
  - Reflux gastritis [Unknown]
  - Sedation [Unknown]
  - Dry throat [Unknown]
  - Metabolic disorder [Unknown]
  - Constipation [Unknown]
  - Pain in jaw [Unknown]
  - Dysmenorrhoea [Unknown]
  - Oral discomfort [Unknown]
  - Depressed mood [Unknown]
  - Pericarditis [Unknown]
  - Troponin increased [Unknown]
  - Neuralgia [Unknown]
